FAERS Safety Report 12923565 (Version 4)
Quarter: 2017Q2

REPORT INFORMATION
  Report Type: Spontaneous
  Country: US (occurrence: US)
  Receive Date: 20161109
  Receipt Date: 20170505
  Transmission Date: 20170830
  Serious: No
  Sender: FDA-Public Use
  Company Number: US-PFIZER INC-2016517456

PATIENT
  Age: 65 Year
  Sex: Female

DRUGS (1)
  1. GENOTROPIN MQ [Suspect]
     Active Substance: SOMATROPIN
     Dosage: 0.2 MG, UNK

REACTIONS (7)
  - Malaise [Unknown]
  - Asthenia [Unknown]
  - Rash [Unknown]
  - Inflammation [Unknown]
  - Skin reaction [Unknown]
  - Stress [Unknown]
  - Incorrect product storage [Unknown]
